FAERS Safety Report 22212640 (Version 3)
Quarter: 2024Q2

REPORT INFORMATION
  Report Type: Spontaneous
  Country: US (occurrence: US)
  Receive Date: 20230414
  Receipt Date: 20240411
  Transmission Date: 20240715
  Serious: Yes (Hospitalization, Other)
  Sender: FDA-Public Use
  Company Number: US-PFIZER INC-PV202300067594

PATIENT
  Age: 76 Year
  Sex: Female
  Weight: 95.238 kg

DRUGS (1)
  1. XELJANZ XR [Suspect]
     Active Substance: TOFACITINIB CITRATE
     Dosage: 11 MG BY MOUTH ONCE DAILY
     Route: 048

REACTIONS (2)
  - Chronic kidney disease [Unknown]
  - Hypoacusis [Unknown]
